FAERS Safety Report 6577185-4 (Version None)
Quarter: 2010Q1

REPORT INFORMATION
  Report Type: 
  Country: None (occurrence: None)
  Receive Date: 20100210
  Receipt Date: 20100201
  Transmission Date: 20100710
  Serious: Yes (Hospitalization)
  Sender: FDA-Public Use
  Company Number: PHHY2010IT06017

PATIENT
  Sex: Male

DRUGS (2)
  1. VOLTAREN [Suspect]
     Indication: HYPERPYREXIA
     Dosage: 25 MG, PER DAY
     Route: 030
     Dates: start: 20091017, end: 20091019
  2. LEUSTATIN [Suspect]
     Indication: HAIRY CELL LEUKAEMIA
     Dosage: 6 MG PER DAY
     Dates: start: 20091009, end: 20091015

REACTIONS (6)
  - ANURIA [None]
  - BLOOD ALKALINE PHOSPHATASE INCREASED [None]
  - FLUID RETENTION [None]
  - GAMMA-GLUTAMYLTRANSFERASE INCREASED [None]
  - TRANSAMINASES INCREASED [None]
  - WEIGHT INCREASED [None]
